FAERS Safety Report 9163432 (Version 1)
Quarter: 2013Q1

REPORT INFORMATION
  Report Type: Spontaneous
  Country: ID (occurrence: ID)
  Receive Date: 20130314
  Receipt Date: 20130314
  Transmission Date: 20140127
  Serious: Yes (Other)
  Sender: FDA-Public Use
  Company Number: ID-B.I. PHARMACEUTICALS,INC./RIDGEFIELD-2013-BI-06148IP

PATIENT
  Age: 58 Year
  Sex: Female

DRUGS (4)
  1. TRADJENTA [Suspect]
     Indication: TYPE 2 DIABETES MELLITUS
     Dosage: 5 MG
     Route: 048
  2. SUMAGESIC [Concomitant]
     Indication: PYREXIA
     Route: 048
  3. GLUCOVANCE [Concomitant]
     Indication: TYPE 2 DIABETES MELLITUS
     Route: 048
  4. NORVASK [Concomitant]
     Indication: HYPERTENSION
     Route: 048

REACTIONS (1)
  - Purpura [Unknown]
